FAERS Safety Report 8195918-0 (Version None)
Quarter: 2012Q1

REPORT INFORMATION
  Report Type: 
  Country: None (occurrence: None)
  Receive Date: 20120308
  Receipt Date: 20120224
  Transmission Date: 20120608
  Serious: Yes (Hospitalization)
  Sender: FDA-Public Use
  Company Number: DE-MYLANLABS-2012S1004386

PATIENT
  Age: 55 Year
  Sex: Female

DRUGS (5)
  1. PREDNISOLONE [Suspect]
     Indication: COLITIS ULCERATIVE
     Dosage: UP TO 2 MG/KG/DAY
     Route: 065
  2. CYCLOSPORINE [Suspect]
     Indication: COLITIS ULCERATIVE
     Dosage: 3 MG/KG CONTINUOUS INFUSION OVER 24 HOURS
     Route: 041
  3. MESALAMINE [Concomitant]
     Indication: COLITIS ULCERATIVE
     Route: 065
  4. AZATHIOPRINE [Suspect]
     Indication: COLITIS ULCERATIVE
     Dosage: 2.5 MG/KG/DAY
     Route: 048
  5. PREDNISOLONE [Suspect]
     Dosage: 1 MG/KG/DAY
     Route: 065

REACTIONS (11)
  - SEPTIC SHOCK [None]
  - INTESTINAL ISCHAEMIA [None]
  - MEGACOLON [None]
  - RESPIRATORY FAILURE [None]
  - MULTI-ORGAN FAILURE [None]
  - BRONCHOPULMONARY ASPERGILLOSIS [None]
  - HERPES ZOSTER [None]
  - CHOLECYSTITIS [None]
  - RENAL FAILURE [None]
  - LEUKOPENIA [None]
  - HEPATIC FAILURE [None]
